FAERS Safety Report 11210241 (Version 1)
Quarter: 2015Q2

REPORT INFORMATION
  Report Type: Spontaneous
  Country: FR (occurrence: FR)
  Receive Date: 20150622
  Receipt Date: 20150622
  Transmission Date: 20150821
  Serious: Yes (Other)
  Sender: FDA-Public Use
  Company Number: FR-BAXTER-2015BAX032251

PATIENT
  Age: 34 Year
  Sex: Female

DRUGS (14)
  1. NOREPINEPHRINE [Suspect]
     Active Substance: NOREPINEPHRINE\NOREPINEPHRINE BITARTRATE
     Indication: BETA HAEMOLYTIC STREPTOCOCCAL INFECTION
  2. PIPERACILLIN [Suspect]
     Active Substance: PIPERACILLIN
     Indication: TOXIC SHOCK SYNDROME STREPTOCOCCAL
     Route: 065
  3. CLINDAMYCIN [Suspect]
     Active Substance: CLINDAMYCIN\CLINDAMYCIN PHOSPHATE
     Indication: BETA HAEMOLYTIC STREPTOCOCCAL INFECTION
  4. CEFTRIAXON [Concomitant]
     Active Substance: CEFTRIAXONE
     Indication: PRODUCT USED FOR UNKNOWN INDICATION
     Route: 042
  5. METRONIDAZOLE BAXTER 0,5 POUR CENT, SOLUTION INJECTABLE EN POCHE [Suspect]
     Active Substance: METRONIDAZOLE
     Indication: TOXIC SHOCK SYNDROME STREPTOCOCCAL
     Route: 042
  6. METRONIDAZOLE BAXTER 0,5 POUR CENT, SOLUTION INJECTABLE EN POCHE [Suspect]
     Active Substance: METRONIDAZOLE
     Indication: BETA HAEMOLYTIC STREPTOCOCCAL INFECTION
  7. CHLORURE DE SODIUM 0.9% VIAFLO, SOLUTION POUR PERFUSION [Suspect]
     Active Substance: SODIUM CHLORIDE
     Indication: OFF LABEL USE
  8. OFLOXACIN. [Concomitant]
     Active Substance: OFLOXACIN
     Indication: PRODUCT USED FOR UNKNOWN INDICATION
     Route: 042
  9. NOREPINEPHRINE [Suspect]
     Active Substance: NOREPINEPHRINE\NOREPINEPHRINE BITARTRATE
     Indication: TOXIC SHOCK SYNDROME STREPTOCOCCAL
     Route: 065
  10. CLINDAMYCIN [Suspect]
     Active Substance: CLINDAMYCIN\CLINDAMYCIN PHOSPHATE
     Indication: TOXIC SHOCK SYNDROME STREPTOCOCCAL
     Route: 065
  11. TAZOBACTAM [Suspect]
     Active Substance: TAZOBACTAM
     Indication: TOXIC SHOCK SYNDROME STREPTOCOCCAL
     Route: 065
  12. AMIKACIN [Suspect]
     Active Substance: AMIKACIN
     Indication: TOXIC SHOCK SYNDROME STREPTOCOCCAL
     Route: 065
  13. CHLORURE DE SODIUM 0.9% VIAFLO, SOLUTION POUR PERFUSION [Suspect]
     Active Substance: SODIUM CHLORIDE
     Indication: TOXIC SHOCK SYNDROME STREPTOCOCCAL
     Route: 042
  14. CHLORURE DE SODIUM 0.9% VIAFLO, SOLUTION POUR PERFUSION [Suspect]
     Active Substance: SODIUM CHLORIDE
     Indication: BETA HAEMOLYTIC STREPTOCOCCAL INFECTION

REACTIONS (3)
  - Exposure during pregnancy [Recovered/Resolved]
  - Abortion induced [Recovered/Resolved]
  - Renal tubular necrosis [Recovered/Resolved]
